FAERS Safety Report 6977215-1 (Version None)
Quarter: 2010Q3

REPORT INFORMATION
  Report Type: 
  Country: None (occurrence: None)
  Receive Date: 20100910
  Receipt Date: 20100729
  Transmission Date: 20110219
  Serious: No
  Sender: FDA-Public Use
  Company Number: US-PFIZER INC-2010073568

PATIENT
  Sex: Female
  Weight: 56.689 kg

DRUGS (2)
  1. ESTRING [Suspect]
     Indication: VULVOVAGINAL DRYNESS
     Dosage: 2 MG, EVERY 3 MONTHS
     Route: 067
     Dates: start: 20080506, end: 20100501
  2. ESTRING [Suspect]
     Indication: ATROPHIC VULVOVAGINITIS

REACTIONS (7)
  - BREAST ENGORGEMENT [None]
  - BREAST PAIN [None]
  - BREAST TENDERNESS [None]
  - HOT FLUSH [None]
  - HYPERHIDROSIS [None]
  - NIPPLE PAIN [None]
  - POOR QUALITY SLEEP [None]
